FAERS Safety Report 14910787 (Version 2)
Quarter: 2018Q2

REPORT INFORMATION
  Report Type: Spontaneous
  Country: US (occurrence: US)
  Receive Date: 20180517
  Receipt Date: 20180525
  Transmission Date: 20180711
  Serious: No
  Sender: FDA-Public Use
  Company Number: US-009507513-1805USA005895

PATIENT
  Sex: Female

DRUGS (1)
  1. NEXPLANON [Suspect]
     Active Substance: ETONOGESTREL
     Dosage: ONE IMPLANT EVERY 3 YEARS
     Route: 059
     Dates: start: 201711

REACTIONS (2)
  - Complication associated with device [Not Recovered/Not Resolved]
  - Drug dose omission [Unknown]
